FAERS Safety Report 19067772 (Version 1)
Quarter: 2021Q1

REPORT INFORMATION
  Report Type: Spontaneous
  Country: JP (occurrence: JP)
  Receive Date: 20210329
  Receipt Date: 20210329
  Transmission Date: 20210420
  Serious: Yes (Hospitalization)
  Sender: FDA-Public Use
  Company Number: JP-AMGEN-JPNSP2020056616

PATIENT
  Age: 70 Year
  Sex: Male
  Weight: 53.5 kg

DRUGS (28)
  1. RIONA [Concomitant]
     Active Substance: FERRIC CITRATE ANHYDROUS
     Dosage: 750 MILLIGRAM, QD
     Route: 048
     Dates: start: 20190620
  2. EPOGIN [Concomitant]
     Active Substance: ERYTHROPOIETIN
     Dosage: 9000 INTERNATIONAL UNIT, QWK
     Route: 065
     Dates: start: 20201023, end: 20201208
  3. EPOGIN [Concomitant]
     Active Substance: ERYTHROPOIETIN
     Dosage: 1500 INTERNATIONAL UNIT, QWK
     Route: 065
     Dates: start: 20210119
  4. PARSABIV [Suspect]
     Active Substance: ETELCALCETIDE HYDROCHLORIDE
     Dosage: 10 MILLIGRAM, Q56H
     Route: 010
     Dates: start: 20180811, end: 20181018
  5. PARSABIV [Suspect]
     Active Substance: ETELCALCETIDE HYDROCHLORIDE
     Dosage: 12.5 MILLIGRAM, Q56H
     Route: 010
     Dates: start: 20181020, end: 20201003
  6. REGPARA [Concomitant]
     Active Substance: CINACALCET HYDROCHLORIDE
     Dosage: 75 MILLIGRAM, QD
     Route: 048
     Dates: end: 20180718
  7. FOSRENOL [Concomitant]
     Active Substance: LANTHANUM CARBONATE
     Dosage: 2000 MILLIGRAM, QD
     Route: 048
     Dates: start: 20190117
  8. PARSABIV [Suspect]
     Active Substance: ETELCALCETIDE HYDROCHLORIDE
     Dosage: 7.5 MILLIGRAM, Q56H
     Route: 010
     Dates: start: 20180501, end: 20180809
  9. OXAROL [Concomitant]
     Active Substance: MAXACALCITOL
     Dosage: 7.5 MICROGRAM, Q56H
     Route: 065
     Dates: end: 20180808
  10. OXAROL [Concomitant]
     Active Substance: MAXACALCITOL
     Dosage: 5 MICROGRAM, QWK
     Route: 065
     Dates: start: 20190917, end: 20201018
  11. OXAROL [Concomitant]
     Active Substance: MAXACALCITOL
     Dosage: 5 MICROGRAM, Q84H
     Route: 065
     Dates: start: 20201020, end: 20210218
  12. FOSRENOL [Concomitant]
     Active Substance: LANTHANUM CARBONATE
     Dosage: 1500 MILLIGRAM, QD
     Route: 048
     Dates: start: 20180920, end: 20190116
  13. RIONA [Concomitant]
     Active Substance: FERRIC CITRATE ANHYDROUS
     Dosage: 750 MILLIGRAM, QD
     Route: 048
     Dates: start: 20180906, end: 20190227
  14. EPOGIN [Concomitant]
     Active Substance: ERYTHROPOIETIN
     Dosage: 3000 INTERNATIONAL UNIT, QWK
     Route: 065
     Dates: end: 20190228
  15. PARSABIV [Suspect]
     Active Substance: ETELCALCETIDE HYDROCHLORIDE
     Dosage: 12.5 MILLIGRAM, Q56H
     Route: 010
     Dates: start: 20201024
  16. RIONA [Concomitant]
     Active Substance: FERRIC CITRATE ANHYDROUS
     Dosage: 500 MILLIGRAM, QD
     Route: 048
     Dates: end: 20180905
  17. PRECIPITATED CALCIUM CARBONATE [Concomitant]
     Active Substance: CALCIUM CARBONATE
     Dosage: 1500 MILLIGRAM, QD
     Route: 048
     Dates: start: 20180222, end: 20181114
  18. EPOGIN [Concomitant]
     Active Substance: ERYTHROPOIETIN
     Dosage: 4500 INTERNATIONAL UNIT, QWK
     Route: 065
     Dates: start: 20201210, end: 20210117
  19. PARSABIV [Suspect]
     Active Substance: ETELCALCETIDE HYDROCHLORIDE
     Indication: HYPERPARATHYROIDISM SECONDARY
     Dosage: 5 MILLIGRAM, Q56H
     Route: 010
     Dates: start: 20180213, end: 20180428
  20. OXAROL [Concomitant]
     Active Substance: MAXACALCITOL
     Dosage: 5 MICROGRAM, Q56H
     Route: 065
     Dates: start: 20180809, end: 20190226
  21. FOSRENOL [Concomitant]
     Active Substance: LANTHANUM CARBONATE
     Dosage: 750 MILLIGRAM, QD
     Route: 048
     Dates: end: 20180919
  22. RIONA [Concomitant]
     Active Substance: FERRIC CITRATE ANHYDROUS
     Dosage: 1250 MILLIGRAM, QD
     Route: 048
     Dates: start: 20190228, end: 20190619
  23. PRECIPITATED CALCIUM CARBONATE [Concomitant]
     Active Substance: CALCIUM CARBONATE
     Dosage: 3000 MILLIGRAM, QD
     Route: 048
     Dates: start: 20181115, end: 20190227
  24. PRECIPITATED CALCIUM CARBONATE [Concomitant]
     Active Substance: CALCIUM CARBONATE
     Dosage: 1500 MILLIGRAM, QD
     Route: 048
     Dates: start: 20190228, end: 20190314
  25. OXAROL [Concomitant]
     Active Substance: MAXACALCITOL
     Dosage: 7.5 MICROGRAM, Q56H
     Route: 065
     Dates: start: 20190228, end: 20190518
  26. OXAROL [Concomitant]
     Active Substance: MAXACALCITOL
     Dosage: 5 MICROGRAM, Q56H
     Route: 065
     Dates: start: 20190521, end: 20190914
  27. OXAROL [Concomitant]
     Active Substance: MAXACALCITOL
     Dosage: 7.5 MICROGRAM, Q84H
     Route: 065
     Dates: start: 20190917, end: 20201018
  28. OXAROL [Concomitant]
     Active Substance: MAXACALCITOL
     Dosage: 2.5 MICROGRAM, Q84H
     Route: 065
     Dates: start: 20210220

REACTIONS (5)
  - Dermal cyst [Recovered/Resolved]
  - Fall [Unknown]
  - Lumbar spinal stenosis [Recovered/Resolved]
  - Rib fracture [Recovered/Resolved]
  - Blood calcium increased [Unknown]

NARRATIVE: CASE EVENT DATE: 20181213
